FAERS Safety Report 7806529-8 (Version None)
Quarter: 2011Q4

REPORT INFORMATION
  Report Type: 
  Country: None (occurrence: None)
  Receive Date: 20111007
  Receipt Date: 20111007
  Transmission Date: 20120403
  Serious: Yes (Death)
  Sender: FDA-Public Use
  Company Number: None

PATIENT
  Age: 62 Year
  Sex: Male
  Weight: 94.3 kg

DRUGS (1)
  1. PRADAXA [Suspect]
     Indication: ATRIAL FIBRILLATION
     Dosage: 150MG BID PO

REACTIONS (6)
  - CARDIO-RESPIRATORY ARREST [None]
  - BRAIN DEATH [None]
  - PERICARDIAL HAEMORRHAGE [None]
  - UNRESPONSIVE TO STIMULI [None]
  - CARDIAC TAMPONADE [None]
  - PROCEDURAL COMPLICATION [None]
